FAERS Safety Report 25340857 (Version 5)
Quarter: 2025Q2

REPORT INFORMATION
  Report Type: Spontaneous
  Country: PL (occurrence: PL)
  Receive Date: 20250521
  Receipt Date: 20250618
  Transmission Date: 20250716
  Serious: Yes (Life-Threatening, Other)
  Sender: SANDOZ
  Company Number: PL-Orion Corporation ORION PHARMA-RIOR2025-0005

PATIENT
  Age: 57 Year
  Sex: Female

DRUGS (16)
  1. BISOPROLOL [Suspect]
     Active Substance: BISOPROLOL
     Indication: Atrial fibrillation
     Route: 065
  2. BISOPROLOL [Suspect]
     Active Substance: BISOPROLOL
     Indication: Product used for unknown indication
  3. BISOPROLOL [Suspect]
     Active Substance: BISOPROLOL
     Indication: Product used for unknown indication
  4. PROPAFENONE [Suspect]
     Active Substance: PROPAFENONE
     Indication: Atrial fibrillation
     Route: 065
  5. BISOPROLOL [Concomitant]
     Active Substance: BISOPROLOL
     Indication: Product used for unknown indication
     Route: 065
  6. GINKGO [Concomitant]
     Active Substance: GINKGO
     Indication: Product used for unknown indication
     Route: 065
  7. PROPAFENONE [Concomitant]
     Active Substance: PROPAFENONE
     Indication: Product used for unknown indication
     Route: 065
  8. SERTRALINE [Concomitant]
     Active Substance: SERTRALINE HYDROCHLORIDE
     Indication: Product used for unknown indication
     Route: 065
  9. Sophora flower formula [Concomitant]
     Indication: Product used for unknown indication
     Route: 065
  10. CLARITHROMYCIN [Interacting]
     Active Substance: CLARITHROMYCIN
     Indication: Respiratory tract infection
     Dosage: 500 MG, Q12H, 2X 500 MG P.O., BID, 0.5 DAY
     Route: 048
     Dates: start: 2024
  11. GINKGO [Interacting]
     Active Substance: GINKGO
     Indication: Dizziness
     Route: 065
  12. GINKGO [Interacting]
     Active Substance: GINKGO
     Indication: Product used for unknown indication
  13. RIVAROXABAN [Interacting]
     Active Substance: RIVAROXABAN
     Indication: Atrial fibrillation
     Dosage: 20 MG/DAY (BAYER), DAILY
     Route: 065
  14. RIVAROXABAN [Interacting]
     Active Substance: RIVAROXABAN
     Indication: Product used for unknown indication
     Route: 065
  15. SERTRALINE HYDROCHLORIDE [Interacting]
     Active Substance: SERTRALINE HYDROCHLORIDE
     Indication: Depression
     Route: 065
  16. SERTRALINE HYDROCHLORIDE [Interacting]
     Active Substance: SERTRALINE HYDROCHLORIDE
     Indication: Product used for unknown indication

REACTIONS (10)
  - Drug interaction [Unknown]
  - Central nervous system haemorrhage [Unknown]
  - Labelled drug-drug interaction issue [Unknown]
  - Cerebral haemorrhage [Unknown]
  - Potentiating drug interaction [Unknown]
  - Atrial fibrillation [Unknown]
  - Central nervous system haemorrhage [Unknown]
  - Respiratory tract infection [Unknown]
  - Depression [Unknown]
  - Dizziness [Unknown]

NARRATIVE: CASE EVENT DATE: 20240101
